FAERS Safety Report 4364960-X (Version None)
Quarter: 2004Q2

REPORT INFORMATION
  Report Type: 
  Country: None (occurrence: None)
  Receive Date: 20040521
  Receipt Date: 20040511
  Transmission Date: 20050107
  Serious: Yes (Other)
  Sender: FDA-Public Use
  Company Number: US-JNJFOC-20040502198

PATIENT
  Age: 56 Year
  Sex: Male
  Weight: 77.5651 kg

DRUGS (2)
  1. REMICADE [Suspect]
     Indication: CROHN'S DISEASE
     Dosage: 400 MG 1 IN 8 WEEK INTRAVENOUS
     Route: 042
     Dates: start: 20020901
  2. REMICADE [Suspect]
     Indication: CROHN'S DISEASE
     Dosage: 400 MG 1 IN 8 WEEK INTRAVENOUS
     Route: 042
     Dates: start: 20040430

REACTIONS (2)
  - CARDIAC MURMUR [None]
  - RALES [None]
